FAERS Safety Report 14341017 (Version 3)
Quarter: 2018Q1

REPORT INFORMATION
  Report Type: Spontaneous
  Country: JP (occurrence: JP)
  Receive Date: 20180102
  Receipt Date: 20180215
  Transmission Date: 20180509
  Serious: Yes (Death, Other)
  Sender: FDA-Public Use
  Company Number: JP-009507513-1712JPN003299J

PATIENT
  Age: 78 Year
  Sex: Female

DRUGS (10)
  1. SOSEGON [Suspect]
     Active Substance: PENTAZOCINE
     Dosage: 1 ML, QD
     Route: 042
     Dates: start: 20160226, end: 20160226
  2. PROPOFOL. [Suspect]
     Active Substance: PROPOFOL
     Indication: INDUCTION OF ANAESTHESIA
     Dosage: 8 ML, QD
     Route: 042
     Dates: start: 20160226, end: 20160226
  3. DILTIAZEM HYDROCHLORIDE. [Concomitant]
     Active Substance: DILTIAZEM HYDROCHLORIDE
     Indication: BLOOD PRESSURE MANAGEMENT
     Dosage: UNK
     Route: 051
     Dates: start: 20160226
  4. BRIDION [Suspect]
     Active Substance: SUGAMMADEX
     Indication: NEUROMUSCULAR BLOCKADE REVERSAL
     Dosage: 2 ML, QD
     Route: 042
     Dates: start: 20160226, end: 20160226
  5. ALEVIATIN [Suspect]
     Active Substance: PHENYTOIN SODIUM
     Indication: CONVULSION PROPHYLAXIS
     Dosage: 125 MG, QD
     Route: 042
     Dates: start: 20160226, end: 20160226
  6. ESLAX INTRAVENOUS 50MG/5.0ML [Suspect]
     Active Substance: ROCURONIUM BROMIDE
     Indication: NEUROMUSCULAR BLOCKING THERAPY
     Dosage: 5 ML, QD
     Route: 042
     Dates: start: 20160226, end: 20160226
  7. FENTANYL. [Suspect]
     Active Substance: FENTANYL
     Dosage: 2 MG, QD
     Route: 042
     Dates: start: 20160226, end: 20160226
  8. NICARDIPINE HYDROCHLORIDE. [Concomitant]
     Active Substance: NICARDIPINE HYDROCHLORIDE
     Indication: BLOOD PRESSURE MANAGEMENT
     Dosage: UNK
     Route: 051
     Dates: start: 20160226
  9. SEVOFLURANE. [Suspect]
     Active Substance: SEVOFLURANE
     Indication: INDUCTION OF ANAESTHESIA
     Dosage: UNK
     Route: 055
     Dates: start: 20160226, end: 20160226
  10. EDARAVONE [Suspect]
     Active Substance: EDARAVONE
     Indication: CEREBRAL INFARCTION
     Dosage: 30 MG, BID
     Route: 042
     Dates: start: 20160227, end: 20160228

REACTIONS (4)
  - Rhabdomyolysis [Fatal]
  - Renal impairment [Fatal]
  - Subarachnoid haemorrhage [Fatal]
  - Multiple organ dysfunction syndrome [Fatal]

NARRATIVE: CASE EVENT DATE: 20160226
